FAERS Safety Report 24178833 (Version 1)
Quarter: 2024Q3

REPORT INFORMATION
  Report Type: Report from Study
  Country: US (occurrence: US)
  Receive Date: 20240806
  Receipt Date: 20240806
  Transmission Date: 20241016
  Serious: Yes (Other)
  Sender: ABBVIE
  Company Number: US-ABBVIE-5864676

PATIENT
  Age: 44 Year
  Sex: Female

DRUGS (3)
  1. SKYRIZI [Suspect]
     Active Substance: RISANKIZUMAB-RZAA
     Indication: Psoriasis
     Dosage: STRENGTH 150 MG/ML PEN WEEK 4
     Route: 058
     Dates: start: 202210, end: 202210
  2. SKYRIZI [Suspect]
     Active Substance: RISANKIZUMAB-RZAA
     Dosage: STRENGTH 150 MG/ML PEN WEEK 0
     Route: 058
     Dates: start: 202209, end: 202209
  3. SKYRIZI [Suspect]
     Active Substance: RISANKIZUMAB-RZAA
     Dosage: STRENGTH 150 MG/ML EVERY 12 WEEKS
     Route: 058
     Dates: start: 202301

REACTIONS (6)
  - Limb operation [Unknown]
  - Pruritus [Recovered/Resolved]
  - Upper respiratory tract infection [Unknown]
  - Haemoptysis [Unknown]
  - Pneumonia [Unknown]
  - Oropharyngeal pain [Recovered/Resolved]

NARRATIVE: CASE EVENT DATE: 20231201
